FAERS Safety Report 8848073 (Version 1)
Quarter: 2012Q4

REPORT INFORMATION
  Report Type: 
  Country: US (occurrence: US)
  Receive Date: 20121018
  Receipt Date: 20121018
  Transmission Date: 20130627
  Serious: Yes (Life-Threatening, Hospitalization)
  Sender: FDA-Public Use
  Company Number: US-B.I. PHARMACEUTICALS,INC./RIDGEFIELD-2012-BP-25625BP

PATIENT
  Sex: Female

DRUGS (1)
  1. MOBIC [Suspect]
     Indication: INFLAMMATION
     Dosage: 15 mg
     Route: 048
     Dates: start: 201111, end: 20120327

REACTIONS (2)
  - Apparent death [Recovered/Resolved]
  - Myocardial infarction [Recovered/Resolved]
